FAERS Safety Report 8087200-7 (Version None)
Quarter: 2012Q1

REPORT INFORMATION
  Report Type: 
  Country: None (occurrence: None)
  Receive Date: 20120128
  Receipt Date: 20110426
  Transmission Date: 20120608
  Serious: No
  Sender: FDA-Public Use
  Company Number: US-ABBOTT-11P-163-0722066-00

PATIENT
  Age: 37 Year
  Sex: Female

DRUGS (6)
  1. ULTRAM [Concomitant]
     Indication: PAIN
     Dates: start: 20090101
  2. GABAPENTIN [Concomitant]
     Indication: PAIN
     Dosage: CHANGED TO 100 MG IN AM AND 300 IN PM
     Dates: start: 20110301
  3. HUMIRA [Suspect]
     Indication: PSORIATIC ARTHROPATHY
     Dates: start: 20091001, end: 20101202
  4. RESTORIL [Concomitant]
     Indication: INSOMNIA
     Dates: start: 20090101
  5. MIDRIN [Concomitant]
     Indication: HEADACHE
     Dosage: 325/55/100 MG
     Dates: start: 20080101
  6. ALBUTEROL [Concomitant]
     Indication: BRONCHITIS CHRONIC
     Route: 055
     Dates: start: 20080101

REACTIONS (1)
  - PSORIASIS [None]
